FAERS Safety Report 25564778 (Version 1)
Quarter: 2025Q3

REPORT INFORMATION
  Report Type: Spontaneous
  Country: US (occurrence: None)
  Receive Date: 20250715
  Receipt Date: 20250715
  Transmission Date: 20251021
  Serious: Yes (Hospitalization)
  Sender: FDA-CTU
  Company Number: None

PATIENT
  Sex: Female

DRUGS (17)
  1. COPAXONE [Suspect]
     Active Substance: GLATIRAMER ACETATE
     Indication: Multiple sclerosis
     Dosage: 20 MG DAILY SUBCUTANEOUS
     Route: 058
     Dates: start: 20231205
  2. ACETAMINOPHEN\HYDROCODONE [Concomitant]
     Active Substance: ACETAMINOPHEN\HYDROCODONE
  3. FERROUS BISGLYCINATE CHEL [Concomitant]
  4. ATORVASTATIN CALCIUM [Concomitant]
     Active Substance: ATORVASTATIN CALCIUM
  5. LEVOTHYROXINE SODIUM [Concomitant]
     Active Substance: LEVOTHYROXINE SODIUM
  6. ELIQUIS [Concomitant]
     Active Substance: APIXABAN
  7. TRAZODONE [Concomitant]
     Active Substance: TRAZODONE HYDROCHLORIDE
  8. FYCOMPA [Concomitant]
     Active Substance: PERAMPANEL
  9. APTIOM [Concomitant]
     Active Substance: ESLICARBAZEPINE ACETATE
  10. GABAPENTIN [Concomitant]
     Active Substance: GABAPENTIN
  11. NIFEDIPINE [Concomitant]
     Active Substance: NIFEDIPINE
  12. SENNA [Concomitant]
     Active Substance: SENNOSIDES
  13. QUETIAPINE [Concomitant]
     Active Substance: QUETIAPINE
  14. OXYBUTYNIN [Concomitant]
     Active Substance: OXYBUTYNIN
  15. LISINOPRIL [Concomitant]
     Active Substance: LISINOPRIL
  16. OMEPRAZOLE [Concomitant]
     Active Substance: OMEPRAZOLE
  17. ZIPRASIDONE [Concomitant]
     Active Substance: ZIPRASIDONE

REACTIONS (1)
  - Cerebrovascular accident [None]
